FAERS Safety Report 6772540-1 (Version None)
Quarter: 2010Q2

REPORT INFORMATION
  Report Type: 
  Country: None (occurrence: None)
  Receive Date: 20100616
  Receipt Date: 20091208
  Transmission Date: 20101027
  Serious: No
  Sender: FDA-Public Use
  Company Number: US-ASTRAZENECA-2009SE31085

PATIENT
  Age: 3 Year
  Sex: Male

DRUGS (2)
  1. PULMICORT RESPULES [Suspect]
     Indication: INFLUENZA
     Route: 055
  2. PULMICORT RESPULES [Suspect]
     Indication: COUGH
     Route: 055

REACTIONS (1)
  - RESPIRATORY RATE INCREASED [None]
